FAERS Safety Report 8245807 (Version 2)
Quarter: 2012Q4

REPORT INFORMATION
  Report Type: 
  Country: US (occurrence: US)
  Receive Date: 20111115
  Receipt Date: 20120914
  Transmission Date: 20130627
  Serious: Yes (Hospitalization, Other)
  Sender: FDA-Public Use
  Company Number: US-PFIZER INC-2011274762

PATIENT
  Sex: Female

DRUGS (5)
  1. CEREBYX [Suspect]
     Indication: CONVULSION
     Dosage: UNK
  2. DILANTIN-125 [Suspect]
     Dosage: UNK
     Route: 048
  3. FOSPHENYTOIN [Suspect]
     Indication: CONVULSION
     Dosage: UNK
     Route: 048
     Dates: start: 20090915, end: 20090923
  4. TAMIFLU [Suspect]
     Dosage: UNK
  5. LEVAQUIN [Suspect]
     Indication: PHARYNGITIS STREPTOCOCCAL
     Dosage: UNK
     Dates: start: 20090910, end: 20090919

REACTIONS (8)
  - Toxic epidermal necrolysis [Not Recovered/Not Resolved]
  - Stevens-Johnson syndrome [Not Recovered/Not Resolved]
  - Skin necrosis [Unknown]
  - Soft tissue necrosis [Not Recovered/Not Resolved]
  - Blister [Unknown]
  - Finger amputation [Not Recovered/Not Resolved]
  - Amnesia [Not Recovered/Not Resolved]
  - Scar [Not Recovered/Not Resolved]
